FAERS Safety Report 5606037-9 (Version None)
Quarter: 2008Q1

REPORT INFORMATION
  Report Type: 
  Country: None (occurrence: None)
  Receive Date: 20080129
  Receipt Date: 20080119
  Transmission Date: 20080703
  Serious: Yes (Other)
  Sender: FDA-Public Use
  Company Number: IT-ABBOTT-08P-083-0433461-00

PATIENT
  Sex: Female

DRUGS (2)
  1. FULCRO [Suspect]
     Indication: HYPERCHOLESTEROLAEMIA
     Route: 048
     Dates: start: 20071210, end: 20080110
  2. EFALIZUMAB [Suspect]
     Indication: PSORIASIS
     Route: 058
     Dates: start: 20070813, end: 20071231

REACTIONS (2)
  - ANGIOEDEMA [None]
  - URTICARIA [None]
